FAERS Safety Report 10504624 (Version 3)
Quarter: 2014Q4

REPORT INFORMATION
  Report Type: Report from Study
  Country: CA (occurrence: CA)
  Receive Date: 20141008
  Receipt Date: 20141027
  Transmission Date: 20150528
  Serious: Yes (Hospitalization)
  Sender: FDA-Public Use
  Company Number: PHHY2013CA123753

PATIENT
  Sex: Female

DRUGS (3)
  1. GILENYA [Suspect]
     Active Substance: FINGOLIMOD HYDROCHLORIDE
     Indication: RELAPSING-REMITTING MULTIPLE SCLEROSIS
     Dosage: 0.5 MG, QD
     Route: 048
     Dates: start: 20131029, end: 20140112
  2. ATASOL [Concomitant]
     Active Substance: ACETAMINOPHEN
  3. GILENYA [Suspect]
     Active Substance: FINGOLIMOD HYDROCHLORIDE
     Dosage: 0.5 MG, QD
     Route: 048
     Dates: start: 20140116, end: 20140220

REACTIONS (12)
  - Headache [Not Recovered/Not Resolved]
  - Fatigue [Not Recovered/Not Resolved]
  - Paraesthesia [Unknown]
  - Gait disturbance [Unknown]
  - Abdominal discomfort [Unknown]
  - Multiple sclerosis relapse [Not Recovered/Not Resolved]
  - Bladder disorder [Unknown]
  - Dysuria [Unknown]
  - Constipation [Unknown]
  - Hypotension [Unknown]
  - Hypersomnia [Unknown]
  - Expanded disability status scale score increased [Unknown]
